FAERS Safety Report 9833161 (Version 1)
Quarter: 2014Q1

REPORT INFORMATION
  Report Type: Spontaneous
  Country: US (occurrence: US)
  Receive Date: 20140121
  Receipt Date: 20140121
  Transmission Date: 20141002
  Serious: No
  Sender: FDA-Public Use
  Company Number: US-BAUSCH-BL-2013-000598

PATIENT
  Sex: Female

DRUGS (1)
  1. ALAWAY [Suspect]
     Indication: OCULAR HYPERAEMIA
     Dosage: 1 DROP IN EACH EYE, ONCE DAILY
     Route: 047
     Dates: start: 201301, end: 201302

REACTIONS (2)
  - Lacrimation increased [Recovered/Resolved]
  - Vision blurred [Recovered/Resolved]
